FAERS Safety Report 23257045 (Version 1)
Quarter: 2023Q4

REPORT INFORMATION
  Report Type: Spontaneous
  Country: US (occurrence: US)
  Receive Date: 20231204
  Receipt Date: 20231204
  Transmission Date: 20240110
  Serious: Yes (Death, Other)
  Sender: FDA-Public Use
  Company Number: US-GSK-US2023167140

PATIENT

DRUGS (1)
  1. TRELEGY ELLIPTA [Suspect]
     Active Substance: FLUTICASONE FUROATE\UMECLIDINIUM BROMIDE\VILANTEROL TRIFENATATE
     Indication: Chronic obstructive pulmonary disease
     Dosage: UNK, QD 200-62.5MCG USE 1 INHALATION BY MOUTH ONCE DAILY
     Route: 055
     Dates: start: 202308, end: 202311

REACTIONS (8)
  - Dyspnoea [Fatal]
  - Pneumonia [Unknown]
  - Small cell lung cancer [Unknown]
  - Oral candidiasis [Unknown]
  - Fungal infection [Unknown]
  - Oropharyngeal pain [Unknown]
  - Chemotherapy [Unknown]
  - Throat tightness [Unknown]

NARRATIVE: CASE EVENT DATE: 20231001
